FAERS Safety Report 20031012 (Version 1)
Quarter: 2021Q4

REPORT INFORMATION
  Report Type: Spontaneous
  Country: US (occurrence: US)
  Receive Date: 20211103
  Receipt Date: 20211103
  Transmission Date: 20220303
  Serious: No
  Sender: FDA-Public Use
  Company Number: US-ALLERGAN-2049218US

PATIENT
  Age: 39 Year
  Sex: Female

DRUGS (4)
  1. VRAYLAR [Suspect]
     Active Substance: CARIPRAZINE
     Indication: Bipolar disorder
     Dosage: UNK UNK, QD
  2. MAGNESIUM [Concomitant]
     Active Substance: MAGNESIUM
     Indication: Gitelman^s syndrome
  3. POTASSIUM [Concomitant]
     Active Substance: POTASSIUM
     Indication: Gitelman^s syndrome
  4. SODIUM [Concomitant]
     Active Substance: SODIUM
     Indication: Gitelman^s syndrome

REACTIONS (3)
  - Emotional disorder [Unknown]
  - Drug-disease interaction [Unknown]
  - Product dose omission issue [Unknown]

NARRATIVE: CASE EVENT DATE: 20201001
